FAERS Safety Report 5044546-4 (Version None)
Quarter: 2006Q2

REPORT INFORMATION
  Report Type: 
  Country: None (occurrence: None)
  Receive Date: 20060629
  Receipt Date: 20060620
  Transmission Date: 20061013
  Serious: Yes (Death, Hospitalization)
  Sender: FDA-Public Use
  Company Number: 2006067942

PATIENT
  Age: 90 Year
  Sex: Male
  Weight: 70 kg

DRUGS (8)
  1. ZYVOX [Suspect]
     Indication: STAPHYLOCOCCAL INFECTION
     Dosage: 1200 MG (600 MG, 2 IN 1 D), ORAL
     Route: 048
     Dates: start: 20060428, end: 20060520
  2. VANCOMYCIN [Concomitant]
  3. TEICOPLANIN (TEICOPLANIN) [Concomitant]
  4. LANSOPRAZOLE [Concomitant]
  5. RISPERDAL [Concomitant]
  6. LENDORM [Concomitant]
  7. ATARAX [Concomitant]
  8. AMLODIPINE [Concomitant]

REACTIONS (17)
  - ANOREXIA [None]
  - ANURIA [None]
  - APNOEA [None]
  - BLOOD PRESSURE DECREASED [None]
  - CONDITION AGGRAVATED [None]
  - DEPRESSED LEVEL OF CONSCIOUSNESS [None]
  - DISSEMINATED INTRAVASCULAR COAGULATION [None]
  - ENTERITIS [None]
  - FEELING ABNORMAL [None]
  - GENERAL PHYSICAL HEALTH DETERIORATION [None]
  - HEART RATE DECREASED [None]
  - INFLAMMATION [None]
  - METABOLIC ACIDOSIS [None]
  - MULTI-ORGAN FAILURE [None]
  - NAUSEA [None]
  - RENAL FAILURE CHRONIC [None]
  - URINARY TRACT INFECTION [None]
